FAERS Safety Report 5233141-X (Version None)
Quarter: 2007Q1

REPORT INFORMATION
  Report Type: 
  Country: None (occurrence: None)
  Receive Date: 20070207
  Receipt Date: 20070126
  Transmission Date: 20070707
  Serious: Yes (Hospitalization, Other)
  Sender: FDA-Public Use
  Company Number: US-PFIZER INC-2007007197

PATIENT
  Age: 74 Year
  Sex: Female

DRUGS (3)
  1. SINEQUAN [Suspect]
  2. ZOLOFT [Suspect]
  3. CHANTIX [Suspect]
     Indication: SMOKING CESSATION THERAPY

REACTIONS (11)
  - AORTIC STENOSIS [None]
  - CARDIAC FAILURE CONGESTIVE [None]
  - DRUG INEFFECTIVE [None]
  - DYSPNOEA [None]
  - EMOTIONAL DISORDER [None]
  - EXTRASYSTOLES [None]
  - LUNG DISORDER [None]
  - NERVOUSNESS [None]
  - PALPITATIONS [None]
  - SMOKER [None]
  - SOMNOLENCE [None]
